FAERS Safety Report 25870032 (Version 1)
Quarter: 2025Q4

REPORT INFORMATION
  Report Type: Spontaneous
  Country: US (occurrence: None)
  Receive Date: 20251001
  Receipt Date: 20251001
  Transmission Date: 20260118
  Serious: Yes (Hospitalization)
  Sender: FDA-CTU
  Company Number: None

PATIENT
  Sex: Female

DRUGS (11)
  1. TACROLIMUS [Suspect]
     Active Substance: TACROLIMUS
     Dosage: ?TAKE 1 CAPSULE BY MOUTH EVERY EVENING?
     Route: 048
     Dates: start: 20250715
  2. ATORVASTATIN TAB 20MG [Concomitant]
  3. CARVEDILOL TAB 3.125 MG [Concomitant]
  4. DUPIXENT [Concomitant]
     Active Substance: DUPILUMAB
  5. DUPIXENT [Concomitant]
     Active Substance: DUPILUMAB
  6. FIBER FORMUL CAP [Concomitant]
  7. LEVOTHYROXIN TAB 75MCG [Concomitant]
  8. LOSARTAN POT TAB 25MG [Concomitant]
  9. MOUNJARO I NJ 1 SMG/0.5 [Concomitant]
  10. MULTIVITAMIN TAB ADLT 50+ [Concomitant]
  11. NURTEC TAB 75MG ODT [Concomitant]

REACTIONS (2)
  - Concussion [None]
  - Drug ineffective [None]
